FAERS Safety Report 17168116 (Version 1)
Quarter: 2019Q4

REPORT INFORMATION
  Report Type: Spontaneous
  Country: US (occurrence: US)
  Receive Date: 20191125
  Receipt Date: 20191125
  Transmission Date: 20200122
  Serious: Yes (Death)
  Sender: FDA-Public Use
  Company Number: None

PATIENT
  Age: 70 Year
  Sex: Male
  Weight: 81.65 kg

DRUGS (2)
  1. VALSARTAN 80MG [Suspect]
     Active Substance: VALSARTAN
     Indication: HYPERTENSION
     Dosage: ?          QUANTITY:80 MG MILLIGRAM(S);?
     Route: 048
     Dates: start: 20151029, end: 20170501
  2. IBUPROFEN. [Concomitant]
     Active Substance: IBUPROFEN

REACTIONS (11)
  - Dehydration [None]
  - Nightmare [None]
  - Abdominal pain upper [None]
  - Asthenia [None]
  - Dysarthria [None]
  - Speech disorder [None]
  - Haemorrhage [None]
  - Rectal cancer [None]
  - Chromaturia [None]
  - Flatulence [None]
  - Product contamination chemical [None]

NARRATIVE: CASE EVENT DATE: 20180106
